FAERS Safety Report 23947307 (Version 1)
Quarter: 2024Q2

REPORT INFORMATION
  Report Type: Spontaneous
  Country: US (occurrence: US)
  Receive Date: 20240606
  Receipt Date: 20240606
  Transmission Date: 20240716
  Serious: No
  Sender: FDA-Public Use
  Company Number: US-MYLANLABS-2024M1047043

PATIENT
  Sex: Male

DRUGS (1)
  1. TOLTERODINE TARTRATE [Suspect]
     Active Substance: TOLTERODINE TARTRATE
     Indication: Product used for unknown indication
     Dosage: UNK
     Route: 065
     Dates: start: 2024

REACTIONS (4)
  - Constipation [Unknown]
  - Headache [Unknown]
  - Abdominal pain upper [Unknown]
  - Dry mouth [Unknown]

NARRATIVE: CASE EVENT DATE: 20240101
